FAERS Safety Report 5645793-0 (Version None)
Quarter: 2008Q1

REPORT INFORMATION
  Report Type: 
  Country: None (occurrence: None)
  Receive Date: 20080229
  Receipt Date: 20080213
  Transmission Date: 20080703
  Serious: Yes (Other)
  Sender: FDA-Public Use
  Company Number: MX-ALLERGAN-0802402US

PATIENT
  Sex: Female
  Weight: 47 kg

DRUGS (3)
  1. BOTOX [Suspect]
     Indication: FIBROMYALGIA
     Dosage: 100 UNITS, SINGLE
     Route: 030
     Dates: start: 20080209, end: 20080209
  2. BOTOX [Suspect]
     Indication: MYALGIA
     Dosage: 100 UNITS, SINGLE
     Route: 030
     Dates: start: 20071101, end: 20071101
  3. CYMBALTA [Concomitant]
     Indication: FIBROMYALGIA

REACTIONS (3)
  - ASTHENIA [None]
  - DYSPNOEA [None]
  - FATIGUE [None]
